FAERS Safety Report 25603388 (Version 1)
Quarter: 2025Q3

REPORT INFORMATION
  Report Type: Spontaneous
  Country: IN (occurrence: IN)
  Receive Date: 20250724
  Receipt Date: 20250724
  Transmission Date: 20251021
  Serious: Yes (Other)
  Sender: ELI LILLY AND COMPANY
  Company Number: IN-Merck Healthcare KGaA-2025035637

PATIENT
  Age: 68 Year
  Sex: Female

DRUGS (2)
  1. ERBITUX [Suspect]
     Active Substance: CETUXIMAB
     Indication: Rectosigmoid cancer
     Route: 065
  2. ERBITUX [Suspect]
     Active Substance: CETUXIMAB
     Route: 065

REACTIONS (3)
  - Chest pain [Unknown]
  - Dyspnoea [Recovered/Resolved]
  - Rash [Unknown]
